FAERS Safety Report 8570764-4 (Version None)
Quarter: 2012Q3

REPORT INFORMATION
  Report Type: 
  Country: None (occurrence: None)
  Receive Date: 20120805
  Receipt Date: 20120723
  Transmission Date: 20120928
  Serious: No
  Sender: FDA-Public Use
  Company Number: US-009507513-1207USA009942

PATIENT

DRUGS (6)
  1. IMDUR [Concomitant]
  2. LIPITOR [Concomitant]
  3. ZOCOR [Interacting]
     Route: 048
  4. BENICAR [Suspect]
  5. NEXIUM [Interacting]
     Route: 048
  6. AZOR [Interacting]

REACTIONS (4)
  - GASTROOESOPHAGEAL REFLUX DISEASE [None]
  - DRUG INTERACTION [None]
  - BLOOD PRESSURE INCREASED [None]
  - DRUG DOSE OMISSION [None]
